FAERS Safety Report 12682951 (Version 7)
Quarter: 2018Q4

REPORT INFORMATION
  Report Type: Spontaneous
  Country: BR (occurrence: BR)
  Receive Date: 20160825
  Receipt Date: 20181004
  Transmission Date: 20190204
  Serious: Yes (Hospitalization, Disabling, Other)
  Sender: FDA-Public Use
  Company Number: BR-009507513-1608BRA010429

PATIENT
  Age: 30 Year
  Sex: Female
  Weight: 63.5 kg

DRUGS (2)
  1. IMPLANON [Suspect]
     Active Substance: ETONOGESTREL
     Indication: MENSTRUAL CYCLE MANAGEMENT
  2. IMPLANON [Suspect]
     Active Substance: ETONOGESTREL
     Indication: CONTRACEPTION
     Dosage: 1IMPLANT IN THE LEFT ARM
     Route: 059
     Dates: start: 20040218

REACTIONS (19)
  - Complication associated with device [Recovered/Resolved]
  - Incorrect product administration duration [Unknown]
  - Device dislocation [Not Recovered/Not Resolved]
  - Haemangioma of liver [Unknown]
  - Ovarian cyst [Recovered/Resolved]
  - Leiomyoma [Recovered/Resolved]
  - Complication associated with device [Recovered/Resolved]
  - Weight increased [Recovered/Resolved]
  - Complication of device removal [Not Recovered/Not Resolved]
  - Product use in unapproved indication [Unknown]
  - Megacolon [Unknown]
  - Mobility decreased [Unknown]
  - Complication of device removal [Not Recovered/Not Resolved]
  - Complication associated with device [Recovered/Resolved]
  - Endometriosis [Unknown]
  - Pain in extremity [Unknown]
  - Complication of device removal [Not Recovered/Not Resolved]
  - Complication associated with device [Recovered/Resolved]
  - Peripheral swelling [Unknown]

NARRATIVE: CASE EVENT DATE: 2004
